FAERS Safety Report 12187566 (Version 1)
Quarter: 2016Q1

REPORT INFORMATION
  Report Type: Report from Study
  Country: US (occurrence: US)
  Receive Date: 20160317
  Receipt Date: 20160317
  Transmission Date: 20160526
  Serious: Yes (Other)
  Sender: FDA-Public Use
  Company Number: US-GILEAD-2016-0203112

PATIENT
  Age: 82 Year
  Sex: Female

DRUGS (2)
  1. ADCIRCA [Suspect]
     Active Substance: TADALAFIL
     Indication: PRODUCT USED FOR UNKNOWN INDICATION
     Route: 065
  2. AMBRISENTAN [Suspect]
     Active Substance: AMBRISENTAN
     Indication: PRODUCT USED FOR UNKNOWN INDICATION
     Dosage: 5 MG, QD
     Route: 065
     Dates: start: 20160224

REACTIONS (8)
  - Dry skin [Unknown]
  - Visual impairment [Unknown]
  - Pruritus [Unknown]
  - Depression [Unknown]
  - Fluid retention [Unknown]
  - Optic nerve injury [Unknown]
  - Nasal congestion [Unknown]
  - Vision blurred [Unknown]

NARRATIVE: CASE EVENT DATE: 20160306
